FAERS Safety Report 8276506-4 (Version None)
Quarter: 2012Q2

REPORT INFORMATION
  Report Type: 
  Country: None (occurrence: None)
  Receive Date: 20120412
  Receipt Date: 20120103
  Transmission Date: 20120825
  Serious: No
  Sender: FDA-Public Use
  Company Number: US-GLAXOSMITHKLINE-A0956685A

PATIENT
  Age: 82 Year
  Sex: Male

DRUGS (7)
  1. PANTOPRAZOLE [Concomitant]
  2. JALYN [Suspect]
     Indication: BENIGN PROSTATIC HYPERPLASIA
     Dosage: 1CAP PER DAY
     Route: 048
     Dates: start: 20111015
  3. ALLOPURINOL [Concomitant]
  4. GABAPENTIN [Concomitant]
  5. CYMBALTA [Concomitant]
  6. LIPITOR [Concomitant]
  7. TRAVATAN [Concomitant]

REACTIONS (2)
  - PAROSMIA [None]
  - RHINITIS [None]
